FAERS Safety Report 21798820 (Version 2)
Quarter: 2025Q2

REPORT INFORMATION
  Report Type: Report from Study
  Country: IT (occurrence: IT)
  Receive Date: 20221230
  Receipt Date: 20250616
  Transmission Date: 20250717
  Serious: Yes (Other)
  Sender: AUROBINDO
  Company Number: IT-DOCGEN-2205470

PATIENT
  Age: 32 Year
  Sex: Female

DRUGS (5)
  1. ARIPIPRAZOLE [Suspect]
     Active Substance: ARIPIPRAZOLE
     Indication: Psychotic disorder
     Dosage: 30 MILLIGRAM, ONCE A DAY (UP TO 30 MG)
     Route: 065
  2. OLANZAPINE [Suspect]
     Active Substance: OLANZAPINE
     Indication: Psychotic disorder
     Dosage: 5 MILLIGRAM, ONCE A DAY
     Route: 065
     Dates: start: 2019
  3. OLANZAPINE [Suspect]
     Active Substance: OLANZAPINE
     Dosage: 10 MILLIGRAM, ONCE A DAY (5 MG/DAY UP TITRATED TO 10 MG/DAY)
     Route: 065
     Dates: start: 2019
  4. LURASIDONE [Suspect]
     Active Substance: LURASIDONE
     Indication: Psychotic disorder
     Dosage: 148 MILLIGRAM, ONCE A DAY
     Route: 065
  5. PALIPERIDONE [Concomitant]
     Active Substance: PALIPERIDONE
     Indication: Psychotic disorder
     Route: 065

REACTIONS (6)
  - Sedation complication [Unknown]
  - Amenorrhoea [Unknown]
  - Weight increased [Unknown]
  - Akathisia [Unknown]
  - Depressed mood [Recovered/Resolved]
  - Drug ineffective [Unknown]
